FAERS Safety Report 8064393-9 (Version None)
Quarter: 2011Q4

REPORT INFORMATION
  Report Type: 
  Country: None (occurrence: None)
  Receive Date: 20111221
  Receipt Date: 20110414
  Transmission Date: 20120403
  Serious: Yes (Hospitalization)
  Sender: FDA-Public Use
  Company Number: PHHY2011US31849

PATIENT
  Age: 26 Year
  Sex: Male

DRUGS (6)
  1. EXJADE [Suspect]
     Indication: SICKLE CELL ANAEMIA
     Dosage: 2000 MG, DAILY, ORAL
     Route: 048
     Dates: start: 20101101
  2. HYDROXYUREA [Concomitant]
  3. FOLIC ACID [Concomitant]
  4. OXYCODONE HCL [Concomitant]
  5. HALCION [Concomitant]
  6. HYDROMORPHONE HCL [Concomitant]

REACTIONS (1)
  - SICKLE CELL ANAEMIA WITH CRISIS [None]
